FAERS Safety Report 25268811 (Version 1)
Quarter: 2025Q2

REPORT INFORMATION
  Report Type: Report from Study
  Country: RO (occurrence: RO)
  Receive Date: 20250505
  Receipt Date: 20250505
  Transmission Date: 20250717
  Serious: Yes (Hospitalization)
  Sender: ABBVIE
  Company Number: RO-ABBVIE-6262075

PATIENT
  Age: 64 Year
  Sex: Female
  Weight: 80 kg

DRUGS (1)
  1. FOSCARBIDOPA\FOSLEVODOPA [Suspect]
     Active Substance: FOSCARBIDOPA\FOSLEVODOPA
     Indication: Parkinson^s disease
     Route: 058
     Dates: start: 20250305, end: 20250430

REACTIONS (4)
  - Acute psychosis [Recovering/Resolving]
  - Panic attack [Recovering/Resolving]
  - Disorientation [Recovering/Resolving]
  - Emotional disorder [Unknown]

NARRATIVE: CASE EVENT DATE: 20250101
